FAERS Safety Report 13101973 (Version 1)
Quarter: 2017Q1

REPORT INFORMATION
  Report Type: Spontaneous
  Country: US (occurrence: US)
  Receive Date: 20170110
  Receipt Date: 20170110
  Transmission Date: 20170428
  Serious: No
  Sender: FDA-Public Use
  Company Number: US-ASTRAZENECA-2017SE00928

PATIENT
  Sex: Female

DRUGS (1)
  1. BRILINTA [Suspect]
     Active Substance: TICAGRELOR
     Indication: CORONARY ARTERIAL STENT INSERTION
     Dosage: TWO TIMES A DAY
     Route: 048

REACTIONS (3)
  - Memory impairment [Unknown]
  - Drug dose omission [Unknown]
  - Intentional product misuse [Unknown]
